FAERS Safety Report 18966968 (Version 1)
Quarter: 2021Q1

REPORT INFORMATION
  Report Type: Spontaneous
  Country: CN (occurrence: CN)
  Receive Date: 20210303
  Receipt Date: 20210303
  Transmission Date: 20210420
  Serious: Yes (Hospitalization)
  Sender: FDA-Public Use
  Company Number: CN-BAXTER-2021BAX004114

PATIENT
  Age: 59 Year
  Sex: Female

DRUGS (4)
  1. ENDOXAN [Suspect]
     Active Substance: CYCLOPHOSPHAMIDE
     Indication: BREAST CANCER FEMALE
     Dosage: ROUTE: INTRA?PUMP INJECTION
     Route: 050
     Dates: start: 20210215, end: 20210215
  2. ENDOXAN [Suspect]
     Active Substance: CYCLOPHOSPHAMIDE
     Dosage: ROUTE: INTRA?PUMP INJECTION, DOSE RE?INTRODUCED
     Route: 050
  3. DOCETAXEL. [Suspect]
     Active Substance: DOCETAXEL
     Indication: BREAST CANCER FEMALE
     Dosage: ROUTE: INTRA?PUMP INJECTION
     Route: 050
     Dates: start: 20210215, end: 20210215
  4. DOCETAXEL. [Suspect]
     Active Substance: DOCETAXEL
     Dosage: ROUTE: INTRA?PUMP INJECTION, DOSE RE?INTRODUCED
     Route: 050

REACTIONS (2)
  - Haematochezia [Recovered/Resolved]
  - Blood urine present [Unknown]

NARRATIVE: CASE EVENT DATE: 20210216
